FAERS Safety Report 21395104 (Version 1)
Quarter: 2022Q3

REPORT INFORMATION
  Report Type: Spontaneous
  Country: DE (occurrence: DE)
  Receive Date: 20220930
  Receipt Date: 20220930
  Transmission Date: 20221027
  Serious: Yes (Other)
  Sender: FDA-Public Use
  Company Number: DE-JNJFOC-20220933352

PATIENT
  Age: 61 Year
  Sex: Male

DRUGS (1)
  1. ERDAFITINIB [Suspect]
     Active Substance: ERDAFITINIB
     Indication: Bladder transitional cell carcinoma
     Route: 065

REACTIONS (1)
  - Calciphylaxis [Recovering/Resolving]
